FAERS Safety Report 8033883 (Version 15)
Quarter: 2013Q3

REPORT INFORMATION
  Report Type: Spontaneous
  Country: CA (occurrence: CA)
  Receive Date: 20110713
  Receipt Date: 20130913
  Transmission Date: 20140515
  Serious: Yes (Hospitalization, Other)
  Sender: FDA-Public Use
  Company Number: CA-ROCHE-GNE321184

PATIENT
  Age: 68 Year
  Sex: Female

DRUGS (7)
  1. XOLAIR [Suspect]
     Indication: ASTHMA
     Route: 058
     Dates: start: 20110506
  2. XOLAIR [Suspect]
     Route: 065
     Dates: start: 20130718
  3. SINGULAIR [Concomitant]
     Indication: PRODUCT USED FOR UNKNOWN INDICATION
  4. ADVAIR [Concomitant]
     Indication: PRODUCT USED FOR UNKNOWN INDICATION
  5. REACTINE (CANADA) [Concomitant]
     Indication: PRODUCT USED FOR UNKNOWN INDICATION
  6. VENTOLIN [Concomitant]
     Indication: PRODUCT USED FOR UNKNOWN INDICATION
  7. SPIRIVA [Concomitant]
     Indication: PRODUCT USED FOR UNKNOWN INDICATION

REACTIONS (12)
  - Chronic obstructive pulmonary disease [Recovering/Resolving]
  - Blood pressure increased [Not Recovered/Not Resolved]
  - Disease progression [Unknown]
  - Dyspnoea [Not Recovered/Not Resolved]
  - Fungal oesophagitis [Recovered/Resolved]
  - Lung infection [Unknown]
  - Drug ineffective [Unknown]
  - Throat irritation [Unknown]
  - Cough [Unknown]
  - Bronchitis [Unknown]
  - Heart rate increased [Recovered/Resolved]
  - Fatigue [Not Recovered/Not Resolved]
